FAERS Safety Report 20471064 (Version 1)
Quarter: 2022Q1

REPORT INFORMATION
  Report Type: Report from Study
  Country: DE (occurrence: DE)
  Receive Date: 20220214
  Receipt Date: 20220214
  Transmission Date: 20220423
  Serious: Yes (Other)
  Sender: FDA-Public Use
  Company Number: DE-BIOGEN-2022BI01094961

PATIENT
  Age: 0 Year
  Sex: Female

DRUGS (2)
  1. TECFIDERA [Suspect]
     Active Substance: DIMETHYL FUMARATE
     Indication: Maternal exposure timing unspecified
     Route: 064
     Dates: start: 20161027
  2. TECFIDERA [Suspect]
     Active Substance: DIMETHYL FUMARATE
     Route: 063
     Dates: start: 2021, end: 202110

REACTIONS (3)
  - Low birth weight baby [Unknown]
  - Exposure via breast milk [Recovered/Resolved]
  - Foetal exposure during pregnancy [Recovered/Resolved]

NARRATIVE: CASE EVENT DATE: 20200604
